FAERS Safety Report 5813991-9 (Version None)
Quarter: 2008Q3

REPORT INFORMATION
  Report Type: 
  Country: None (occurrence: None)
  Receive Date: 20080715
  Receipt Date: 20080701
  Transmission Date: 20090109
  Serious: Yes (Hospitalization)
  Sender: FDA-Public Use
  Company Number: 14735

PATIENT
  Age: 56 Year
  Sex: Female

DRUGS (19)
  1. MORPHINE SULFATE [Suspect]
     Indication: BACK PAIN
     Dosage: A SINGLE 30MG TAB ORAL
     Route: 048
     Dates: start: 20080520, end: 20080520
  2. MORPHINE SULFATE [Suspect]
     Indication: PAIN IN EXTREMITY
     Dosage: A SINGLE 30MG TAB ORAL
     Route: 048
     Dates: start: 20080520, end: 20080520
  3. DILANTIN [Concomitant]
  4. ASPIRIN [Concomitant]
  5. LORATADINE [Concomitant]
  6. VITAMIN TAB [Concomitant]
  7. PRILOSEC [Concomitant]
  8. ZOLOFT [Concomitant]
  9. DITROPAN [Concomitant]
  10. TYLENOL [Concomitant]
  11. NEURONTIN [Concomitant]
  12. NICODERM [Concomitant]
  13. UNSPECIFIED HAND INHALER [Concomitant]
  14. NASAL MIST [Concomitant]
  15. FLONASE [Concomitant]
  16. ADVAIR DISKUS 100/50 [Concomitant]
  17. LASIX [Concomitant]
  18. PERCODAN-DEMI [Concomitant]
  19. NOVINAR [Concomitant]

REACTIONS (3)
  - ABASIA [None]
  - LETHARGY [None]
  - PHARMACEUTICAL PRODUCT COMPLAINT [None]
